FAERS Safety Report 8034045-X (Version None)
Quarter: 2011Q4

REPORT INFORMATION
  Report Type: 
  Country: None (occurrence: None)
  Receive Date: 20111227
  Receipt Date: 20111219
  Transmission Date: 20120403
  Serious: Yes (Other)
  Sender: FDA-Public Use
  Company Number: US-1188966

PATIENT
  Age: 81 Year
  Sex: Female
  Weight: 104.3273 kg

DRUGS (10)
  1. KETOROLAC TROMETHAMINE [Suspect]
     Indication: POSTOPERATIVE CARE
     Dosage: (OPHTHALMIC)
     Route: 047
  2. KETOROLAC TROMETHAMINE [Suspect]
     Indication: PREOPERATIVE CARE
     Dosage: (OPHTHALMIC)
     Route: 047
  3. VIGAMOX [Suspect]
     Indication: PREOPERATIVE CARE
     Dosage: (TID OPHTHALMIC)
     Route: 047
  4. VIGAMOX [Suspect]
     Indication: POSTOPERATIVE CARE
     Dosage: (TID OPHTHALMIC)
     Route: 047
  5. BSS [Suspect]
     Indication: CATARACT OPERATION
     Dosage: (INTRAOCULAR)
     Route: 031
     Dates: start: 20110919, end: 20110919
  6. BETADINE [Suspect]
     Indication: CATARACT OPERATION
     Dosage: (OPHTHALMIC)
     Route: 047
     Dates: start: 20110919, end: 20110919
  7. BROMDAY [Suspect]
     Indication: PREOPERATIVE CARE
     Dosage: (QD OPHTHALMIC)
  8. BROMDAY [Suspect]
     Indication: POSTOPERATIVE CARE
     Dosage: (QD OPHTHALMIC)
  9. PREDNISOLONE ACETATE [Suspect]
     Indication: PREOPERATIVE CARE
     Dosage: (TID OPHTHALMIC)
     Route: 047
  10. PREDNISOLONE ACETATE [Suspect]
     Indication: POSTOPERATIVE CARE
     Dosage: (TID OPHTHALMIC)
     Route: 047

REACTIONS (5)
  - ENDOPHTHALMITIS [None]
  - HYPOTONIA [None]
  - EYE PAIN [None]
  - RETINAL DETACHMENT [None]
  - BLINDNESS [None]
